FAERS Safety Report 9362131 (Version 3)
Quarter: 2013Q3

REPORT INFORMATION
  Report Type: Spontaneous
  Country: JP (occurrence: JP)
  Receive Date: 20130621
  Receipt Date: 20130813
  Transmission Date: 20140515
  Serious: Yes (Other)
  Sender: FDA-Public Use
  Company Number: JP-ABBOTT-13P-087-1106380-00

PATIENT
  Age: 71 Year
  Sex: Male

DRUGS (3)
  1. LEUPLIN FOR INJECTION KIT [Suspect]
     Indication: PROSTATE CANCER
     Route: 058
     Dates: start: 20121218, end: 20130212
  2. LEUPLIN FOR INJECTION KIT [Suspect]
     Route: 058
     Dates: start: 20130416
  3. CASODEX [Concomitant]
     Indication: PROSTATE CANCER
     Route: 048
     Dates: start: 20121130, end: 20130212

REACTIONS (2)
  - Pericardial effusion [Recovered/Resolved]
  - Cardiac tamponade [Recovered/Resolved]
